FAERS Safety Report 4318732-2 (Version None)
Quarter: 2004Q1

REPORT INFORMATION
  Report Type: 
  Country: None (occurrence: None)
  Receive Date: 20040317
  Receipt Date: 20040317
  Transmission Date: 20041129
  Serious: Yes (Hospitalization)
  Sender: FDA-Public Use
  Company Number: None

PATIENT
  Age: 73 Year
  Sex: Female

DRUGS (1)
  1. DIGOXIN [Suspect]
     Indication: CARDIAC FAILURE CONGESTIVE
     Dosage: .0125 MG DAILY PO
     Route: 048

REACTIONS (6)
  - BRADYCARDIA [None]
  - CONFUSIONAL STATE [None]
  - DIZZINESS [None]
  - LETHARGY [None]
  - MUSCLE CRAMP [None]
  - THERAPEUTIC AGENT TOXICITY [None]
